FAERS Safety Report 5023447-1 (Version None)
Quarter: 2006Q2

REPORT INFORMATION
  Report Type: 
  Country: None (occurrence: None)
  Receive Date: 20060427
  Receipt Date: 20060216
  Transmission Date: 20061013
  Serious: Yes (Life-Threatening, Hospitalization)
  Sender: FDA-Public Use
  Company Number: 2006-138712-NL

PATIENT
  Age: 48 Year
  Sex: Female
  Weight: 64.6 kg

DRUGS (4)
  1. ZEMURON [Suspect]
     Indication: MUSCLE RELAXANT THERAPY
     Dosage: DF INTRAVENOUS (NOS)
     Route: 042
     Dates: start: 20060203, end: 20060203
  2. TRANSDERMAL SCOPOLAMINE OR PLACEBO [Suspect]
     Indication: PROPHYLAXIS OF NAUSEA AND VOMITING
     Dosage: 1.5 MG TRANSDERMAL
     Route: 062
     Dates: start: 20060203, end: 20060204
  3. ONDANSETRON HCL [Suspect]
     Indication: PROPHYLAXIS OF NAUSEA AND VOMITING
     Dosage: 4 MG INTRAVENOUS (NOS)
     Route: 042
     Dates: start: 20060203, end: 20060203
  4. DIAZEPAM [Concomitant]

REACTIONS (1)
  - NEUROMUSCULAR BLOCK PROLONGED [None]
